FAERS Safety Report 4644284-3 (Version None)
Quarter: 2005Q2

REPORT INFORMATION
  Report Type: 
  Country: None (occurrence: None)
  Receive Date: 20050425
  Receipt Date: 20050420
  Transmission Date: 20051028
  Serious: Yes (Hospitalization)
  Sender: FDA-Public Use
  Company Number: DE-MERCK-0504DEU00153

PATIENT
  Sex: Female

DRUGS (1)
  1. VIOXX [Suspect]
     Route: 048
     Dates: end: 20040101

REACTIONS (7)
  - ARTHROPATHY [None]
  - COMMINUTED FRACTURE [None]
  - FEELING ABNORMAL [None]
  - HEADACHE [None]
  - HERPES ZOSTER [None]
  - MAJOR DEPRESSION [None]
  - SUICIDAL IDEATION [None]
